FAERS Safety Report 6315044-2 (Version None)
Quarter: 2009Q3

REPORT INFORMATION
  Report Type: 
  Country: None (occurrence: None)
  Receive Date: 20090819
  Receipt Date: 20090806
  Transmission Date: 20100115
  Serious: Yes (Other)
  Sender: FDA-Public Use
  Company Number: JP-ROCHE-650136

PATIENT
  Sex: Female

DRUGS (4)
  1. TAMIFLU [Suspect]
     Route: 048
     Dates: start: 20090724, end: 20090724
  2. FLUTIDE [Suspect]
     Route: 055
  3. HOKUNALIN [Suspect]
     Route: 062
  4. MUCODYNE [Suspect]
     Route: 048

REACTIONS (1)
  - PSYCHIATRIC SYMPTOM [None]
